FAERS Safety Report 23937823 (Version 2)
Quarter: 2024Q3

REPORT INFORMATION
  Report Type: Spontaneous
  Country: JP (occurrence: JP)
  Receive Date: 20240604
  Receipt Date: 20240710
  Transmission Date: 20241017
  Serious: Yes (Other)
  Sender: PFIZER
  Company Number: JP-PFIZER INC-PV202400072649

PATIENT
  Age: 83 Year
  Sex: Male

DRUGS (3)
  1. VORICONAZOLE [Interacting]
     Active Substance: VORICONAZOLE
     Indication: Scedosporium infection
     Dosage: UNK (INJECTION)
  2. THEOPHYLLINE [Interacting]
     Active Substance: THEOPHYLLINE
     Dosage: UNK (EXTENDED-RELEASE TABLETS)
     Route: 048
  3. BISOPROLOL [Concomitant]
     Active Substance: BISOPROLOL\BISOPROLOL FUMARATE
     Indication: Atrial fibrillation
     Dosage: UNK

REACTIONS (6)
  - Drug interaction [Recovering/Resolving]
  - Antasthmatic drug level above therapeutic [Recovering/Resolving]
  - Drug trough level [Recovering/Resolving]
  - Toxicity to various agents [Recovering/Resolving]
  - Nausea [Recovering/Resolving]
  - Decreased appetite [Recovering/Resolving]
